FAERS Safety Report 4341718-9 (Version None)
Quarter: 2004Q2

REPORT INFORMATION
  Report Type: 
  Country: None (occurrence: None)
  Receive Date: 20040415
  Receipt Date: 20040325
  Transmission Date: 20050107
  Serious: Yes (Other)
  Sender: FDA-Public Use
  Company Number: US_0403101849

PATIENT
  Age: 55 Year
  Sex: Female
  Weight: 114 kg

DRUGS (11)
  1. HUMALOG MIX 75/25 [Suspect]
     Dosage: 12 U/1 IN THE MORNING
     Dates: start: 20020301
  2. ATORVASTATIN [Concomitant]
  3. LANSOPRAZOLE [Concomitant]
  4. DILTIAZEM HYDROCHLORIDE [Concomitant]
  5. LISINOPRIL [Concomitant]
  6. ASPIRIN [Concomitant]
  7. CALCIUM CARBONATE [Concomitant]
  8. LANTUS [Concomitant]
  9. MULTIVITAMIN [Concomitant]
  10. OSCAL (CALCIUM CARBONATE) [Concomitant]
  11. GLUCOPHAGE XR (METFORMIN HYDROCHLORIDE) [Concomitant]

REACTIONS (6)
  - BLOOD GLUCOSE INCREASED [None]
  - DIABETIC RETINOPATHY [None]
  - EYE DISORDER [None]
  - EYE HAEMORRHAGE [None]
  - PHARMACEUTICAL PRODUCT COMPLAINT [None]
  - WEIGHT DECREASED [None]
